FAERS Safety Report 4291408-6 (Version None)
Quarter: 2004Q1

REPORT INFORMATION
  Report Type: 
  Country: None (occurrence: None)
  Receive Date: 20040211
  Receipt Date: 20030916
  Transmission Date: 20041129
  Serious: No
  Sender: FDA-Public Use
  Company Number: US-BRISTOL-MYERS SQUIBB COMPANY-12389813

PATIENT
  Age: 9 Year
  Sex: Male

DRUGS (1)
  1. CEFZIL [Suspect]
     Indication: OTITIS MEDIA
     Route: 048
     Dates: start: 20030913, end: 20030914

REACTIONS (1)
  - RASH [None]
